FAERS Safety Report 4300138-3 (Version None)
Quarter: 2004Q1

REPORT INFORMATION
  Report Type: 
  Country: None (occurrence: None)
  Receive Date: 20040218
  Receipt Date: 20040201
  Transmission Date: 20041129
  Serious: Yes (Death, Life-Threatening, Other)
  Sender: FDA-Public Use
  Company Number: JP_040102469

PATIENT
  Age: 18 Year
  Sex: Male
  Weight: 52 kg

DRUGS (23)
  1. ONCOVIN [Suspect]
     Indication: EWING'S SARCOMA
     Dosage: 2 MG/OTHER
     Dates: start: 20030402, end: 20030409
  2. ONCOVIN [Suspect]
     Indication: METASTASES TO SPINE
     Dosage: 2 MG/OTHER
     Dates: start: 20030402, end: 20030409
  3. IRINOTECAN HYDROCHLORIDE [Concomitant]
  4. BISPHONAL (DISODIUM INCARDRONATE) [Concomitant]
  5. PN TWIN [Concomitant]
  6. SOHVITA [Concomitant]
  7. ELEMENMIC [Concomitant]
  8. FAMOTIDINE [Concomitant]
  9. XYLOCAINE HYDROCHLORIDE (LIDOCAINE HYDROCHLORIDE) [Concomitant]
  10. ROPION (FLURBIPROFEN AXETIL) [Concomitant]
  11. LEPETAN (BUPRENORPHINE HYDROCHLORIDE) [Concomitant]
  12. INTRAFAT [Concomitant]
  13. SULPERAZON [Concomitant]
  14. SOLU-MEDROL [Concomitant]
  15. GLYCEOL [Concomitant]
  16. NASEA (RAMOSETRON HYDROCHLORIDE) [Concomitant]
  17. CEFPIRAMIDE SODIUM [Concomitant]
  18. DIFLUCAN [Concomitant]
  19. UNASYN [Concomitant]
  20. BAKTAR [Concomitant]
  21. FLORID-F (MICONAZOLE) [Concomitant]
  22. TEGRETOL [Concomitant]
  23. IMMUNE GLOBULIN INTRAVENOUS (HUMAN) [Concomitant]

REACTIONS (10)
  - ALANINE AMINOTRANSFERASE INCREASED [None]
  - ASPARTATE AMINOTRANSFERASE INCREASED [None]
  - BLOOD BILIRUBIN INCREASED [None]
  - EWING'S SARCOMA [None]
  - HEPATOMEGALY [None]
  - JAUNDICE [None]
  - MALIGNANT NEOPLASM PROGRESSION [None]
  - PAIN [None]
  - VENOOCCLUSIVE LIVER DISEASE [None]
  - WHITE BLOOD CELL COUNT DECREASED [None]
